FAERS Safety Report 10338131 (Version 1)
Quarter: 2014Q3

REPORT INFORMATION
  Report Type: Spontaneous
  Country: US (occurrence: US)
  Receive Date: 20140724
  Receipt Date: 20140724
  Transmission Date: 20150326
  Serious: Yes (Hospitalization)
  Sender: FDA-Public Use
  Company Number: US-BEH-2014043941

PATIENT
  Age: 57 Year
  Sex: Female
  Weight: 80 kg

DRUGS (33)
  1. BANOPHEN [Concomitant]
     Active Substance: DIPHENHYDRAMINE HYDROCHLORIDE
  2. PULMICORT TURBUHALER [Concomitant]
     Active Substance: BUDESONIDE
  3. OXYCONTIN [Concomitant]
     Active Substance: OXYCODONE HYDROCHLORIDE
  4. FIORICET [Concomitant]
     Active Substance: ACETAMINOPHEN\BUTALBITAL\CAFFEINE
  5. DIPHENHYDRAMINE [Concomitant]
     Active Substance: DIPHENHYDRAMINE
  6. ZANAFLEX [Concomitant]
     Active Substance: TIZANIDINE HYDROCHLORIDE
  7. OXYGEN. [Concomitant]
     Active Substance: OXYGEN
  8. GABAPENTIN. [Concomitant]
     Active Substance: GABAPENTIN
  9. OXCARBAZEPINE. [Concomitant]
     Active Substance: OXCARBAZEPINE
  10. LEVETIRACETAM. [Concomitant]
     Active Substance: LEVETIRACETAM
  11. LIDOCAINE. [Concomitant]
     Active Substance: LIDOCAINE
  12. LEVOXYL [Concomitant]
     Active Substance: LEVOTHYROXINE SODIUM
  13. CRESTOR [Concomitant]
     Active Substance: ROSUVASTATIN CALCIUM
  14. FLEXERIL [Concomitant]
     Active Substance: CYCLOBENZAPRINE HYDROCHLORIDE
  15. DALIRESP [Concomitant]
     Active Substance: ROFLUMILAST
  16. PROAIR HFA [Concomitant]
     Active Substance: ALBUTEROL SULFATE
  17. PERFOROMIST [Concomitant]
     Active Substance: FORMOTEROL FUMARATE DIHYDRATE
  18. DUONEB [Concomitant]
     Active Substance: ALBUTEROL SULFATE\IPRATROPIUM BROMIDE
  19. ZEMAIRA [Suspect]
     Active Substance: .ALPHA.1-PROTEINASE INHIBITOR HUMAN
     Indication: ALPHA-1 ANTI-TRYPSIN DEFICIENCY
     Dosage: MAX RATE 0.08 ML/KG/MIN
     Route: 042
  20. FUROSEMIDE. [Concomitant]
     Active Substance: FUROSEMIDE
  21. CITALOPRAM [Concomitant]
     Active Substance: CITALOPRAM HYDROBROMIDE
  22. HEPARIN [Concomitant]
     Active Substance: HEPARIN SODIUM
  23. ROCEPHIN [Concomitant]
     Active Substance: CEFTRIAXONE SODIUM
  24. PROTONIX [Concomitant]
     Active Substance: PANTOPRAZOLE SODIUM
  25. SENNA [Concomitant]
     Active Substance: SENNA LEAF\SENNOSIDES\SENNOSIDES A AND B
  26. SODIUM CHLORIDE. [Concomitant]
     Active Substance: SODIUM CHLORIDE
  27. EPIPEN [Concomitant]
     Active Substance: EPINEPHRINE
  28. NITROSTAT [Concomitant]
     Active Substance: NITROGLYCERIN
  29. TESSALON [Concomitant]
     Active Substance: BENZONATATE
  30. BENICAR HCT [Concomitant]
     Active Substance: HYDROCHLOROTHIAZIDE\OLMESARTAN MEDOXOMIL
  31. LANTUS [Concomitant]
     Active Substance: INSULIN GLARGINE
  32. HUMALOG [Concomitant]
     Active Substance: INSULIN LISPRO
  33. CLONAZEPAM. [Concomitant]
     Active Substance: CLONAZEPAM

REACTIONS (2)
  - Chest pain [Recovered/Resolved]
  - Cardiac disorder [Recovered/Resolved]

NARRATIVE: CASE EVENT DATE: 20140623
